FAERS Safety Report 17652828 (Version 1)
Quarter: 2020Q2

REPORT INFORMATION
  Report Type: Spontaneous
  Country: CN (occurrence: CN)
  Receive Date: 20200409
  Receipt Date: 20200409
  Transmission Date: 20200713
  Serious: Yes (Hospitalization)
  Sender: FDA-Public Use
  Company Number: CN-PFIZER INC-2020146252

PATIENT
  Age: 40 Year
  Sex: Female
  Weight: 57 kg

DRUGS (2)
  1. SODIUM LACTATE RINGER^S [Concomitant]
     Indication: THERAPEUTIC PROCEDURE
     Dosage: 500.000 ML, 1X/DAY
     Route: 041
     Dates: start: 20200331, end: 20200331
  2. MISOPROSTOL. [Suspect]
     Active Substance: MISOPROSTOL
     Indication: THERAPEUTIC PROCEDURE
     Dosage: 400.000 UG, 1X/DAY
     Route: 067
     Dates: start: 20200331, end: 20200331

REACTIONS (13)
  - Chills [Recovered/Resolved]
  - Product use in unapproved indication [Unknown]
  - Dyspnoea [Recovered/Resolved]
  - Off label use [Unknown]
  - Product use issue [Unknown]
  - Asthenia [Recovered/Resolved]
  - Dizziness [Recovered/Resolved]
  - Syncope [Recovered/Resolved]
  - Abdominal pain [Recovered/Resolved]
  - Chest discomfort [Recovered/Resolved]
  - Pruritus [Recovered/Resolved]
  - Nausea [Recovered/Resolved]
  - Vomiting [Recovered/Resolved]

NARRATIVE: CASE EVENT DATE: 20200331
